FAERS Safety Report 19769389 (Version 2)
Quarter: 2021Q4

REPORT INFORMATION
  Report Type: Report from Study
  Country: IE (occurrence: IE)
  Receive Date: 20210831
  Receipt Date: 20211011
  Transmission Date: 20220304
  Serious: Yes (Hospitalization)
  Sender: FDA-Public Use
  Company Number: IE-PFIZER INC-202101084877

PATIENT
  Weight: 60.2 kg

DRUGS (19)
  1. MITOXANTRONE HYDROCHLORIDE [Suspect]
     Active Substance: MITOXANTRONE HYDROCHLORIDE
     Indication: Acute myeloid leukaemia
     Dosage: 20 MG/M2, 1X/DAY
     Route: 042
     Dates: start: 20210727, end: 20210730
  2. GEMTUZUMAB OZOGAMICIN [Suspect]
     Active Substance: GEMTUZUMAB OZOGAMICIN
     Indication: Acute myeloid leukaemia
     Dosage: 5 MG (OTHER)
     Route: 042
     Dates: start: 20210730, end: 20210730
  3. GENTAMICIN [Concomitant]
     Active Substance: GENTAMICIN
     Indication: Antibiotic therapy
     Dosage: 394 MG, 1X/DAY
     Dates: start: 20210813, end: 20210817
  4. PIPERACILLIN AND TAZOBACTAM [Concomitant]
     Active Substance: PIPERACILLIN SODIUM\TAZOBACTAM SODIUM
     Indication: Antibiotic therapy
     Dosage: 4.5 G, 4X/DAY
     Dates: start: 20210813, end: 20210818
  5. POSACONAZOLE [Concomitant]
     Active Substance: POSACONAZOLE
     Indication: Antifungal treatment
     Dosage: 300 MG, 1X/DAY
     Dates: start: 20210814, end: 20210817
  6. NYSTATIN [Concomitant]
     Active Substance: NYSTATIN
     Indication: Antifungal treatment
     Dosage: 1 ML, 4X/DAY
     Dates: start: 20210814, end: 20210817
  7. SULFAMETHOXAZOLE\TRIMETHOPRIM [Concomitant]
     Active Substance: SULFAMETHOXAZOLE\TRIMETHOPRIM
     Indication: Antibiotic therapy
     Dosage: 960 MG, 2X/DAY
     Dates: start: 20210814, end: 20210817
  8. BISOPROLOL [Concomitant]
     Active Substance: BISOPROLOL
     Indication: Arrhythmia prophylaxis
     Dosage: 1.3 MG, 1X/DAY (1.25MG)
     Dates: start: 20210814, end: 20210818
  9. OMEPRAZOLE [Concomitant]
     Active Substance: OMEPRAZOLE
     Indication: Gastrooesophageal reflux disease
     Dosage: 20 MG, 1X/DAY
     Dates: start: 20210814, end: 20210815
  10. LANSOPRAZOLE [Concomitant]
     Active Substance: LANSOPRAZOLE
     Indication: Antacid therapy
     Dosage: 30 MG, 1X/DAY
     Dates: start: 20210817, end: 20210817
  11. FORTISIP COMPACT PROTEIN [Concomitant]
     Indication: Medical diet
     Dosage: 125 ML, 3X/DAY
     Dates: start: 20210816, end: 20210818
  12. THIAMINE [Concomitant]
     Active Substance: THIAMINE
     Indication: Vitamin supplementation
     Dosage: 100 MG, 2X/DAY
     Dates: start: 20210817, end: 20210818
  13. ACETAMINOPHEN [Concomitant]
     Active Substance: ACETAMINOPHEN
     Indication: Pain
     Dosage: 850 MG, 4X/DAY
     Dates: start: 20210813, end: 20210814
  14. ONDANSETRON [Concomitant]
     Active Substance: ONDANSETRON
     Indication: Vomiting
     Dosage: 8 MG, 3X/DAY
     Dates: start: 20210814, end: 20210817
  15. LACTULOSE [Concomitant]
     Active Substance: LACTULOSE
     Indication: Supplementation therapy
     Dosage: 10 ML, 3X/DAY
     Dates: start: 20210814, end: 20210816
  16. CYCLIZINE [Concomitant]
     Active Substance: CYCLIZINE
     Indication: Vomiting
     Dosage: 50 MG, 3X/DAY
     Dates: start: 20210814, end: 20210817
  17. HEPARIN SODIUM [Concomitant]
     Active Substance: HEPARIN SODIUM
     Indication: Anticoagulant therapy
     Dosage: 2.5 ML, AS NEEDED
     Dates: start: 20210814, end: 20210816
  18. LEVOMEPROMAZINE [Concomitant]
     Active Substance: LEVOMEPROMAZINE
     Indication: Psychotic disorder
     Dosage: 3 MG, 1X/DAY
     Dates: start: 20210816, end: 20210817
  19. AMBISOME [Concomitant]
     Active Substance: AMPHOTERICIN B
     Indication: Antifungal treatment
     Dosage: 60 MG, ALTERNATE DAY
     Dates: start: 20210728, end: 20210809

REACTIONS (1)
  - Febrile neutropenia [Not Recovered/Not Resolved]

NARRATIVE: CASE EVENT DATE: 20210820
